FAERS Safety Report 10235660 (Version 2)
Quarter: 2014Q2

REPORT INFORMATION
  Report Type: Report from Study
  Country: DE (occurrence: DE)
  Receive Date: 20140613
  Receipt Date: 20140613
  Transmission Date: 20141212
  Serious: Yes (Hospitalization)
  Sender: FDA-Public Use
  Company Number: DE-UCBSA-016987

PATIENT
  Age: 63 Year
  Sex: Female
  Weight: 90 kg

DRUGS (3)
  1. ROTIGOTINE PD [Suspect]
     Indication: PARKINSON^S DISEASE
     Dosage: 2 MG, ONCE DAILY (QD)
     Route: 062
     Dates: start: 20100518, end: 20100625
  2. CITALOPRAM [Concomitant]
     Indication: DEPRESSION
     Dosage: 40 MG, ONCE DAILY (QD)
     Dates: start: 20100114
  3. VALDOXAN [Concomitant]
     Indication: DEPRESSION
     Dosage: 50 MG, ONCE DAILY (QD)
     Dates: start: 20100304

REACTIONS (1)
  - Dementia [Recovered/Resolved with Sequelae]
